FAERS Safety Report 8465069-6 (Version None)
Quarter: 2012Q2

REPORT INFORMATION
  Report Type: 
  Country: None (occurrence: None)
  Receive Date: 20120626
  Receipt Date: 20120618
  Transmission Date: 20120825
  Serious: Yes (Hospitalization, Other)
  Sender: FDA-Public Use
  Company Number: US-BAYER-2012-005379

PATIENT
  Age: 34 Year
  Sex: Female
  Weight: 113 kg

DRUGS (9)
  1. YASMIN [Suspect]
     Dosage: UNK
     Dates: start: 20020101, end: 20110101
  2. ADIPEX-P [Concomitant]
  3. VICODIN [Concomitant]
     Indication: PAIN
     Dosage: UNK
     Dates: start: 19980101
  4. OMEPRAZOLE [Concomitant]
  5. ASPMORTIN [Concomitant]
  6. CARISOPRODOL [Concomitant]
  7. DROSPIRENONE AND ETHINYL ESTRADIOL [Suspect]
     Dosage: UNK
     Dates: start: 20020101, end: 20110101
  8. YAZ [Suspect]
     Dosage: UNK
     Dates: start: 20020101, end: 20110101
  9. LASIX [Concomitant]
     Dosage: UNK
     Dates: start: 20000101, end: 20020101

REACTIONS (3)
  - INJURY [None]
  - CHOLECYSTITIS ACUTE [None]
  - HYPERTHYROIDISM [None]
